FAERS Safety Report 5788964-5 (Version None)
Quarter: 2008Q2

REPORT INFORMATION
  Report Type: 
  Country: None (occurrence: None)
  Receive Date: 20080625
  Receipt Date: 20080625
  Transmission Date: 20081010
  Serious: Yes (Life-Threatening)
  Sender: FDA-Public Use
  Company Number: None

PATIENT
  Age: 65 Year
  Sex: Male
  Weight: 60 kg

DRUGS (1)
  1. BEVACIZUMAB [Suspect]
     Indication: LUNG NEOPLASM MALIGNANT
     Dosage: 900MG MG OTHER IV
     Route: 042
     Dates: start: 20070716, end: 20080321

REACTIONS (9)
  - COUGH [None]
  - CYTOTOXIC CARDIOMYOPATHY [None]
  - FLUID OVERLOAD [None]
  - LEFT VENTRICULAR DYSFUNCTION [None]
  - PULMONARY EMBOLISM [None]
  - RIGHT VENTRICULAR DYSFUNCTION [None]
  - TACHYCARDIA [None]
  - TACHYPNOEA [None]
  - WHEEZING [None]
